FAERS Safety Report 10637483 (Version 1)
Quarter: 2014Q4

REPORT INFORMATION
  Report Type: Spontaneous
  Country: US (occurrence: None)
  Receive Date: 20141121
  Receipt Date: 20141121
  Transmission Date: 20150529
  Serious: No
  Sender: FDA-Public Use
  Company Number: 163-10004-14082588

PATIENT
  Age: 51 Year
  Sex: Female

DRUGS (9)
  1. CYMBALTA(DULOXETINE HYDROCHLORIDE) [Concomitant]
  2. LUNESTA(ESZOPICLONE) [Concomitant]
  3. TRAMADOL HYDROCHLORIDE. [Concomitant]
     Active Substance: TRAMADOL HYDROCHLORIDE
  4. LISINOPRIL(LISINOPRIL) [Concomitant]
     Active Substance: LISINOPRIL
  5. AMITIZA(LUBIPROSTONE) [Concomitant]
  6. OTEZLA [Suspect]
     Active Substance: APREMILAST
     Indication: PSORIATIC ARTHROPATHY
     Dosage: PERMANENTLY DISCONTINUED
     Route: 048
     Dates: start: 20140522
  7. ARMOUR THYROID(THYROID [Concomitant]
  8. NUVIGIL [Concomitant]
     Active Substance: ARMODAFINIL
  9. CELEBREX(CELECOXIB) [Concomitant]

REACTIONS (1)
  - Drug ineffective [None]
